FAERS Safety Report 6862729-5 (Version None)
Quarter: 2010Q3

REPORT INFORMATION
  Report Type: 
  Country: None (occurrence: None)
  Receive Date: 20100721
  Receipt Date: 20100714
  Transmission Date: 20110219
  Serious: Yes (Hospitalization, Other)
  Sender: FDA-Public Use
  Company Number: KR-ELI_LILLY_AND_COMPANY-KR201006004368

PATIENT
  Age: 52 Year
  Sex: Female

DRUGS (1)
  1. HUMALOG MIX 75/25 [Suspect]
     Indication: TYPE 2 DIABETES MELLITUS
     Dosage: 10 U, DAILY (1/D)
     Route: 058

REACTIONS (3)
  - FALL [None]
  - HEPATIC CIRRHOSIS [None]
  - SPINAL FRACTURE [None]
